FAERS Safety Report 15900101 (Version 1)
Quarter: 2019Q1

REPORT INFORMATION
  Report Type: Spontaneous
  Country: US (occurrence: US)
  Receive Date: 20190201
  Receipt Date: 20190201
  Transmission Date: 20190417
  Serious: Yes (Other)
  Sender: FDA-Public Use
  Company Number: US-PFIZER INC-2019047535

PATIENT
  Sex: Female

DRUGS (3)
  1. ADRIAMYCIN [Suspect]
     Active Substance: DOXORUBICIN HYDROCHLORIDE
     Dosage: UNK
  2. IBRANCE [Suspect]
     Active Substance: PALBOCICLIB
     Dosage: UNK
  3. AROMASIN [Suspect]
     Active Substance: EXEMESTANE
     Dosage: UNK

REACTIONS (7)
  - Pleural effusion [Unknown]
  - Pharyngitis streptococcal [Unknown]
  - Gastric ulcer [Unknown]
  - Cholecystitis [Unknown]
  - Pulmonary embolism [Unknown]
  - Osteonecrosis of jaw [Unknown]
  - Neoplasm progression [Unknown]
